FAERS Safety Report 4414258-6 (Version None)
Quarter: 2004Q3

REPORT INFORMATION
  Report Type: 
  Country: None (occurrence: None)
  Receive Date: 20040729
  Receipt Date: 20040716
  Transmission Date: 20050211
  Serious: Yes (Death, Hospitalization)
  Sender: FDA-Public Use
  Company Number: 2004223915TH

PATIENT
  Age: 82 Year
  Sex: Male

DRUGS (4)
  1. CELEBREX [Suspect]
  2. IMIPRAMINE [Suspect]
     Indication: PSYCHOTIC DISORDER
  3. OMEPRAZOLE [Suspect]
  4. CALCIUM [Concomitant]

REACTIONS (6)
  - FALL [None]
  - HIP FRACTURE [None]
  - PNEUMONIA [None]
  - RESPIRATORY TRACT INFECTION [None]
  - STEVENS-JOHNSON SYNDROME [None]
  - TOXIC EPIDERMAL NECROLYSIS [None]
